FAERS Safety Report 5758006-6 (Version None)
Quarter: 2008Q2

REPORT INFORMATION
  Report Type: 
  Country: None (occurrence: None)
  Receive Date: 20080602
  Receipt Date: 20080602
  Transmission Date: 20081010
  Serious: Yes (Death)
  Sender: FDA-Public Use
  Company Number: None

PATIENT
  Age: 27 Year
  Sex: Male
  Weight: 63.5036 kg

DRUGS (1)
  1. METHADONE HCL [Suspect]
     Dates: start: 20080314, end: 20080314

REACTIONS (2)
  - ACCIDENTAL EXPOSURE [None]
  - VICTIM OF CRIME [None]
